FAERS Safety Report 8524353-8 (Version None)
Quarter: 2012Q3

REPORT INFORMATION
  Report Type: 
  Country: None (occurrence: None)
  Receive Date: 20120720
  Receipt Date: 20120711
  Transmission Date: 20120928
  Serious: Yes (Hospitalization)
  Sender: FDA-Public Use
  Company Number: KR-PFIZER INC-2012101932

PATIENT
  Age: 52 Year
  Sex: Male
  Weight: 59.3 kg

DRUGS (8)
  1. PROPRANOLOL [Concomitant]
     Indication: PROPHYLAXIS
     Dosage: 10 MG, 2X/DAY
     Route: 048
     Dates: start: 20111121
  2. VITAMIN B COMPLEX CAP [Concomitant]
     Indication: VITAMIN SUPPLEMENTATION
     Dosage: 1 TAB, 1X/DAY
     Route: 048
     Dates: start: 20110304
  3. ENTECAVIR [Concomitant]
     Indication: HEPATITIS B
     Dosage: 0.5 MG, 1X/DAY
     Route: 048
     Dates: start: 20110309
  4. LIRECTAN GRANULE [Concomitant]
     Indication: BLOOD ALBUMIN ABNORMAL
     Dosage: 1 PACKAGE, 3X/DAY
     Route: 048
     Dates: start: 20110905
  5. LACTULOSE [Concomitant]
     Indication: PROPHYLAXIS
     Dosage: 15 ML, 3X/DAY (PRN)
     Route: 048
     Dates: start: 20120116
  6. SPIRONOLACTONE [Concomitant]
     Indication: ASCITES
     Dosage: 50 MG, 1X/DAY
     Route: 048
     Dates: start: 20120306
  7. AXITINIB [Suspect]
     Indication: HEPATIC NEOPLASM MALIGNANT
     Dosage: 2 MG, 2X/DAY
     Route: 048
     Dates: start: 20111121, end: 20120116
  8. AXITINIB [Suspect]
     Dosage: 1 MG, 2X/DAY
     Route: 048
     Dates: start: 20120126, end: 20120416

REACTIONS (2)
  - DISEASE PROGRESSION [None]
  - HEPATIC NEOPLASM MALIGNANT [None]
